FAERS Safety Report 24364655 (Version 1)
Quarter: 2024Q3

REPORT INFORMATION
  Report Type: Spontaneous
  Country: NL (occurrence: NL)
  Receive Date: 20240926
  Receipt Date: 20240926
  Transmission Date: 20241016
  Serious: Yes (Hospitalization)
  Sender: CELLTRION
  Company Number: None

PATIENT

DRUGS (3)
  1. BEVACIZUMAB [Suspect]
     Active Substance: BEVACIZUMAB
     Indication: Rectal cancer
     Dosage: 800 MG
     Dates: start: 20230426
  2. OXALIPLATIN [Suspect]
     Active Substance: OXALIPLATIN
     Indication: Rectal cancer
     Dosage: 285 MG (1X 285MG)
     Dates: start: 20230426
  3. CAPECITABINE [Suspect]
     Active Substance: CAPECITABINE
     Indication: Rectal cancer
     Dosage: 150 MG, EVERY 12 HOUR
     Dates: start: 20230426, end: 20230504

REACTIONS (3)
  - Electrolyte imbalance [Recovering/Resolving]
  - Enteritis [Recovering/Resolving]
  - Intentional product use issue [Unknown]
